FAERS Safety Report 5943582-0 (Version None)
Quarter: 2008Q4

REPORT INFORMATION
  Report Type: 
  Country: None (occurrence: None)
  Receive Date: 20081106
  Receipt Date: 20080502
  Transmission Date: 20090506
  Serious: No
  Sender: FDA-Public Use
  Company Number: A0727058A

PATIENT
  Age: 73 Year
  Sex: Female
  Weight: 109 kg

DRUGS (7)
  1. AMOXICILLIN [Suspect]
     Indication: DENTAL OPERATION
     Route: 065
  2. HUMIRA [Suspect]
     Indication: CROHN'S DISEASE
     Route: 058
     Dates: start: 20070401
  3. LEVOFLOXACIN [Suspect]
     Indication: DRUG USE FOR UNKNOWN INDICATION
     Route: 065
  4. HEART MEDICATION [Concomitant]
     Route: 048
  5. BLOOD PRESSURE MEDICATION [Concomitant]
     Route: 065
  6. ALLERGY MEDICATION [Concomitant]
     Route: 048
  7. SERETIDE [Concomitant]

REACTIONS (1)
  - DIARRHOEA [None]
